FAERS Safety Report 14019419 (Version 1)
Quarter: 2017Q3

REPORT INFORMATION
  Report Type: Report from Study
  Country: US (occurrence: US)
  Receive Date: 20170928
  Receipt Date: 20170928
  Transmission Date: 20171128
  Serious: Yes (Hospitalization, Other)
  Sender: FDA-Public Use
  Company Number: US-ROCHE-1986091

PATIENT
  Age: 53 Year
  Sex: Male

DRUGS (14)
  1. ACARBOSE. [Concomitant]
     Active Substance: ACARBOSE
     Route: 065
  2. RISPERIDONE. [Concomitant]
     Active Substance: RISPERIDONE
  3. PEPCID (UNITED STATES) [Concomitant]
     Route: 065
  4. BUPROPION. [Concomitant]
     Active Substance: BUPROPION
     Route: 065
  5. NEXIUM [Concomitant]
     Active Substance: ESOMEPRAZOLE MAGNESIUM
     Route: 065
  6. XOLAIR [Suspect]
     Active Substance: OMALIZUMAB
     Indication: RHINITIS ALLERGIC
     Dosage: SUBSEQUENT DOSE ON 13/NOV/2013, 03/JAN/2014
     Route: 058
     Dates: start: 20120605
  7. SINGULAIR [Concomitant]
     Active Substance: MONTELUKAST SODIUM
     Route: 065
  8. VIMPAT [Concomitant]
     Active Substance: LACOSAMIDE
     Route: 065
  9. FLUDROCORTISONE [Concomitant]
     Active Substance: FLUDROCORTISONE
     Route: 065
  10. LOSARTAN. [Concomitant]
     Active Substance: LOSARTAN
     Route: 065
  11. NEURONTIN [Concomitant]
     Active Substance: GABAPENTIN
     Route: 065
  12. ATARAX [Concomitant]
     Active Substance: HYDROXYZINE HYDROCHLORIDE
     Route: 065
  13. POTASSIUM CITRATE. [Concomitant]
     Active Substance: POTASSIUM CITRATE
  14. TRAZODONE [Concomitant]
     Active Substance: TRAZODONE HYDROCHLORIDE
     Route: 065

REACTIONS (4)
  - Off label use [Unknown]
  - Intentional product use issue [Unknown]
  - Abdominal wall abscess [Unknown]
  - Anaphylactic reaction [Unknown]

NARRATIVE: CASE EVENT DATE: 20131212
